FAERS Safety Report 6736401-6 (Version None)
Quarter: 2010Q2

REPORT INFORMATION
  Report Type: 
  Country: None (occurrence: None)
  Receive Date: 20100521
  Receipt Date: 20100513
  Transmission Date: 20101027
  Serious: Yes (Hospitalization)
  Sender: FDA-Public Use
  Company Number: JP-MERCK-1005USA02345

PATIENT
  Age: 77 Year
  Sex: Male

DRUGS (7)
  1. JANUVIA [Suspect]
     Indication: TYPE 2 DIABETES MELLITUS
     Route: 048
     Dates: start: 20100220, end: 20100420
  2. ABILIFY [Concomitant]
     Route: 065
  3. PEPCID [Concomitant]
     Route: 065
  4. VITANEURIN (FURSULTIAMINE (+) HYDROXOCOBALAMIN ACETATE (+) PYRIDOXAL P [Concomitant]
     Route: 065
  5. SERENACE [Concomitant]
     Route: 065
  6. CYANOCOBALAMIN [Concomitant]
     Route: 065
  7. RISPERDAL [Suspect]
     Indication: SCHIZOPHRENIA
     Route: 048
     Dates: start: 20100218, end: 20100420

REACTIONS (2)
  - HEPATIC FUNCTION ABNORMAL [None]
  - PANCREATIC DISORDER [None]
